FAERS Safety Report 7288948-4 (Version None)
Quarter: 2011Q1

REPORT INFORMATION
  Report Type: 
  Country: None (occurrence: None)
  Receive Date: 20110211
  Receipt Date: 20110202
  Transmission Date: 20110831
  Serious: Yes (Disabling)
  Sender: FDA-Public Use
  Company Number: FR-ASTRAZENECA-2010SE51264

PATIENT
  Age: 697 Month
  Sex: Male
  Weight: 71 kg

DRUGS (10)
  1. OMEPRAZOLE [Concomitant]
     Route: 048
     Dates: start: 20100727, end: 20100803
  2. SECTRAL [Concomitant]
     Indication: CARDIOVASCULAR EVENT PROPHYLAXIS
     Route: 048
     Dates: start: 20030101
  3. PYOSTACINE [Concomitant]
     Indication: SINUSITIS
     Route: 048
     Dates: start: 20100727, end: 20100803
  4. NETROMYCIN [Concomitant]
     Indication: SINUSITIS
     Route: 055
     Dates: start: 20100727, end: 20100803
  5. PREDNISONE TAB [Concomitant]
     Indication: SINUSITIS
     Route: 048
     Dates: start: 20100727, end: 20100803
  6. PLAVIX [Concomitant]
     Indication: CARDIOVASCULAR EVENT PROPHYLAXIS
     Route: 048
     Dates: start: 20030101
  7. INEGY [Concomitant]
     Indication: HYPERCHOLESTEROLAEMIA
     Route: 048
     Dates: start: 20061101
  8. SOLU-MEDROL [Concomitant]
     Indication: SINUSITIS
     Route: 055
     Dates: start: 20100727, end: 20100803
  9. GOMENOL [Concomitant]
     Indication: SINUSITIS
     Route: 055
     Dates: start: 20100727, end: 20100803
  10. RHINOCORT [Suspect]
     Indication: RHINITIS ALLERGIC
     Dosage: ONE PUFF IN EACH NOSTRIL DAILY
     Route: 045
     Dates: start: 20100727, end: 20101222

REACTIONS (2)
  - ANOSMIA [None]
  - AGEUSIA [None]
